FAERS Safety Report 11485788 (Version 1)
Quarter: 2015Q3

REPORT INFORMATION
  Report Type: Report from Study
  Country: AR (occurrence: AR)
  Receive Date: 20150910
  Receipt Date: 20150910
  Transmission Date: 20151125
  Serious: Yes (Life-Threatening, Other)
  Sender: FDA-Public Use
  Company Number: AR-BRISTOL-MYERS SQUIBB COMPANY-BMS-2015-032165

PATIENT
  Age: 67 Year
  Sex: Female

DRUGS (1)
  1. CETUXIMAB [Suspect]
     Active Substance: CETUXIMAB
     Indication: COLON CANCER
     Dosage: UNK
     Route: 065
     Dates: start: 20141203, end: 20150511

REACTIONS (2)
  - General physical health deterioration [Not Recovered/Not Resolved]
  - Colostomy closure [Recovering/Resolving]

NARRATIVE: CASE EVENT DATE: 20150805
